FAERS Safety Report 12760771 (Version 1)
Quarter: 2016Q3

REPORT INFORMATION
  Report Type: Spontaneous
  Country: US (occurrence: US)
  Receive Date: 20160919
  Receipt Date: 20160919
  Transmission Date: 20161109
  Serious: No
  Sender: FDA-Public Use
  Company Number: US-GALDERMA-US16004810

PATIENT
  Age: 71 Year
  Sex: Female

DRUGS (5)
  1. XANAX [Concomitant]
     Active Substance: ALPRAZOLAM
     Indication: SLEEP DISORDER
     Route: 048
  2. CETAPHIL MOISTURIZER [Concomitant]
     Indication: DRY SKIN PROPHYLAXIS
     Route: 061
     Dates: start: 201607
  3. SUPER GENTLE CLEANER [Concomitant]
     Indication: THERAPEUTIC SKIN CARE TOPICAL
     Route: 061
  4. MIRVASO [Suspect]
     Active Substance: BRIMONIDINE TARTRATE
     Indication: ROSACEA
     Dosage: 0.33%
     Route: 061
     Dates: start: 201508
  5. NEURONTIN [Concomitant]
     Active Substance: GABAPENTIN
     Indication: NEURALGIA
     Route: 048

REACTIONS (4)
  - Skin burning sensation [Not Recovered/Not Resolved]
  - Erythema [Not Recovered/Not Resolved]
  - Drug effect decreased [Not Recovered/Not Resolved]
  - Feeling hot [Not Recovered/Not Resolved]

NARRATIVE: CASE EVENT DATE: 201606
